FAERS Safety Report 9286732 (Version 3)
Quarter: 2013Q2

REPORT INFORMATION
  Report Type: Spontaneous
  Country: BR (occurrence: BR)
  Receive Date: 20130513
  Receipt Date: 20130606
  Transmission Date: 20140414
  Serious: Yes (Other)
  Sender: FDA-Public Use
  Company Number: BR-PFIZER INC-2013142580

PATIENT
  Age: 39 Year
  Sex: Male
  Weight: 76 kg

DRUGS (5)
  1. ATORVASTATINA CALCICA TEUTO [Suspect]
     Indication: DYSLIPIDAEMIA
     Dosage: 10 MG, 1X/DAY
     Dates: start: 2008
  2. FLUCONAZOLE [Interacting]
     Indication: CANDIDA INFECTION
     Dosage: UNK
     Dates: start: 201301
  3. CANDICORT [Interacting]
     Indication: CANDIDA INFECTION
     Dosage: UNK
     Dates: start: 201301
  4. NYSTATIN [Interacting]
     Indication: CANDIDA INFECTION
     Dosage: UNK
     Dates: start: 201301
  5. ITRACONAZOLE [Interacting]
     Indication: CANDIDA INFECTION
     Dosage: UNK
     Dates: start: 201301

REACTIONS (7)
  - Candida infection [Recovered/Resolved]
  - Drug interaction [Recovered/Resolved]
  - Diarrhoea [Recovered/Resolved]
  - Pruritus [Recovered/Resolved]
  - Dyspepsia [Recovered/Resolved]
  - Flatulence [Recovered/Resolved]
  - Drug ineffective [Recovered/Resolved]
